FAERS Safety Report 13726842 (Version 1)
Quarter: 2017Q3

REPORT INFORMATION
  Report Type: Spontaneous
  Country: IN (occurrence: IN)
  Receive Date: 20170707
  Receipt Date: 20170707
  Transmission Date: 20171127
  Serious: Yes (Hospitalization)
  Sender: FDA-Public Use
  Company Number: IN-TORRENT-00001249

PATIENT
  Age: 50 Year
  Sex: Male

DRUGS (6)
  1. VILAZODONE HYDROCHLORIDE [Suspect]
     Active Substance: VILAZODONE HYDROCHLORIDE
  2. PAROXETINE. [Suspect]
     Active Substance: PAROXETINE
  3. MIRTAZAPINE. [Suspect]
     Active Substance: MIRTAZAPINE
  4. ESCITALOPRAM OXALATE. [Suspect]
     Active Substance: ESCITALOPRAM OXALATE
  5. SERTRALINE HYDROCHLORIDE. [Suspect]
     Active Substance: SERTRALINE HYDROCHLORIDE
  6. BUPROPION. [Suspect]
     Active Substance: BUPROPION

REACTIONS (1)
  - Drug ineffective [Unknown]
